FAERS Safety Report 4875947-2 (Version None)
Quarter: 2005Q4

REPORT INFORMATION
  Report Type: 
  Country: None (occurrence: None)
  Receive Date: 20051205
  Receipt Date: 20051031
  Transmission Date: 20060501
  Serious: No
  Sender: FDA-Public Use
  Company Number: USA0510111772

PATIENT
  Sex: Female

DRUGS (6)
  1. ALIMTA [Suspect]
     Dosage: 893 MG
     Dates: start: 20050901
  2. PROTONIX [Concomitant]
  3. SIMETHICONE [Concomitant]
  4. FOLIC ACID [Concomitant]
  5. VITAMIN B-12 [Concomitant]
  6. DECADRON /CAN/(DEXAMETHASONE) [Concomitant]

REACTIONS (1)
  - FLATULENCE [None]
